FAERS Safety Report 5371757-0 (Version None)
Quarter: 2007Q2

REPORT INFORMATION
  Report Type: 
  Country: None (occurrence: None)
  Receive Date: 20070625
  Receipt Date: 20070607
  Transmission Date: 20071010
  Serious: Yes (Hospitalization)
  Sender: FDA-Public Use
  Company Number: TKT01200700277

PATIENT
  Age: 18 Year
  Sex: Male
  Weight: 42 kg

DRUGS (2)
  1. IDURSULFASE [Suspect]
     Indication: MUCOPOLYSACCHARIDOSIS II
     Dosage: 21 MG, 1 IN 1 WK, INTRAVEOUS DRIP
     Route: 041
     Dates: start: 20041229
  2. ENALAPRIL              (ENALAPRIL ) [Concomitant]

REACTIONS (2)
  - APPENDICITIS [None]
  - PERITONITIS [None]
